FAERS Safety Report 9727125 (Version 1)
Quarter: 2013Q4

REPORT INFORMATION
  Report Type: Spontaneous
  Country: US (occurrence: US)
  Receive Date: 20131203
  Receipt Date: 20131203
  Transmission Date: 20140711
  Serious: Yes (Hospitalization)
  Sender: FDA-Public Use
  Company Number: US-BAYER-2013-143938

PATIENT
  Age: 22 Year
  Sex: Female
  Weight: 63.49 kg

DRUGS (7)
  1. YASMIN [Suspect]
  2. LOSEC [Concomitant]
     Dosage: 20 MG, UNK
  3. BUSCOPAN [Concomitant]
  4. OMEGA 3 [Concomitant]
  5. TRAMACET [Concomitant]
  6. NEXIUM [Concomitant]
  7. ALESSE [Concomitant]

REACTIONS (1)
  - Cholecystitis chronic [None]
